FAERS Safety Report 6489889-2 (Version None)
Quarter: 2009Q4

REPORT INFORMATION
  Report Type: 
  Country: None (occurrence: None)
  Receive Date: 20091211
  Receipt Date: 20091208
  Transmission Date: 20100525
  Serious: Yes (Death, Life-Threatening, Disabling)
  Sender: FDA-Public Use
  Company Number: JP-JNJFOC-20091202926

PATIENT
  Sex: Female
  Weight: 64 kg

DRUGS (9)
  1. DOXORUBICIN HCL [Suspect]
     Dosage: CYCLE 3
     Route: 042
     Dates: start: 20090702, end: 20090827
  2. DOXORUBICIN HCL [Suspect]
     Dosage: CYCLE 2
     Route: 042
     Dates: start: 20090702, end: 20090827
  3. DOXORUBICIN HCL [Suspect]
     Indication: OVARIAN CANCER RECURRENT
     Dosage: CYCLE 1
     Route: 042
     Dates: start: 20090702, end: 20090827
  4. NASEA [Concomitant]
     Route: 042
  5. NASEA [Concomitant]
     Route: 042
  6. NASEA [Concomitant]
     Indication: PROPHYLAXIS
     Route: 042
  7. PRIMPERAN TAB [Concomitant]
     Indication: DECREASED APPETITE
     Route: 048
  8. GEMZAR [Concomitant]
     Route: 042
  9. OXYCONTIN [Concomitant]
     Indication: CANCER PAIN
     Route: 048

REACTIONS (10)
  - ASCITES [None]
  - CANCER PAIN [None]
  - DECREASED APPETITE [None]
  - DELIRIUM [None]
  - INTESTINAL OBSTRUCTION [None]
  - MALIGNANT NEOPLASM PROGRESSION [None]
  - NAUSEA [None]
  - PALMAR-PLANTAR ERYTHRODYSAESTHESIA SYNDROME [None]
  - PULMONARY INFARCTION [None]
  - VOMITING [None]
